FAERS Safety Report 24623056 (Version 1)
Quarter: 2024Q4

REPORT INFORMATION
  Report Type: Spontaneous
  Country: FI (occurrence: FI)
  Receive Date: 20241115
  Receipt Date: 20241115
  Transmission Date: 20250115
  Serious: Yes (Hospitalization, Other)
  Sender: SANDOZ
  Company Number: FI-ABBVIE-5989766

PATIENT
  Age: 47 Year
  Sex: Female

DRUGS (11)
  1. ADALIMUMAB [Suspect]
     Active Substance: ADALIMUMAB
     Indication: Product used for unknown indication
     Dosage: 40.000MG
     Route: 058
     Dates: start: 202104
  2. ADALIMUMAB [Suspect]
     Active Substance: ADALIMUMAB
     Dosage: 40.000MG
     Route: 058
     Dates: end: 2022
  3. AZATHIOPRINE [Concomitant]
     Active Substance: AZATHIOPRINE
     Dosage: 100.000MG
     Route: 065
     Dates: start: 202108, end: 202209
  4. AZATHIOPRINE [Concomitant]
     Active Substance: AZATHIOPRINE
     Dosage: 150.000MG
     Route: 065
     Dates: start: 202012, end: 202108
  5. AZATHIOPRINE [Concomitant]
     Active Substance: AZATHIOPRINE
     Indication: Product used for unknown indication
     Dosage: 50.000MG
     Route: 065
     Dates: start: 202209
  6. ENTOCORT [Concomitant]
     Active Substance: BUDESONIDE
     Dosage: 3.000MG
     Route: 065
     Dates: start: 202108
  7. ENTOCORT [Concomitant]
     Active Substance: BUDESONIDE
     Indication: Product used for unknown indication
     Dosage: 6.000MG
     Route: 065
     Dates: start: 2021, end: 202108
  8. PREDNISOLONE [Concomitant]
     Active Substance: PREDNISOLONE
     Indication: Product used for unknown indication
     Dosage: START DATE JAN TO FEB 2022
     Route: 065
  9. USTEKINUMAB [Concomitant]
     Active Substance: USTEKINUMAB
     Indication: Product used for unknown indication
     Dosage: UNK
     Route: 065
     Dates: start: 202204
  10. USTEKINUMAB [Concomitant]
     Active Substance: USTEKINUMAB
     Dosage: UNK
     Route: 065
     Dates: start: 2023
  11. VEDOLIZUMAB [Concomitant]
     Active Substance: VEDOLIZUMAB
     Indication: Product used for unknown indication
     Dosage: UNK
     Route: 065
     Dates: start: 2023

REACTIONS (13)
  - Blood albumin decreased [Unknown]
  - Faecal calprotectin abnormal [Unknown]
  - Dyschezia [Unknown]
  - Feeding disorder [Recovered/Resolved]
  - Intestinal obstruction [Unknown]
  - Enteritis [Unknown]
  - Intestinal obstruction [Recovered/Resolved]
  - Faecal calprotectin abnormal [Unknown]
  - Diarrhoea [Unknown]
  - Malaise [Unknown]
  - Abdominal pain [Unknown]
  - Cytopenia [Unknown]
  - Anaemia [Unknown]

NARRATIVE: CASE EVENT DATE: 20210101
